FAERS Safety Report 6290316-9 (Version None)
Quarter: 2009Q3

REPORT INFORMATION
  Report Type: 
  Country: None (occurrence: None)
  Receive Date: 20090730
  Receipt Date: 20090220
  Transmission Date: 20100115
  Serious: No
  Sender: FDA-Public Use
  Company Number: US-BRISTOL-MYERS SQUIBB COMPANY-14515290

PATIENT
  Sex: Female

DRUGS (8)
  1. COUMADIN [Suspect]
     Dosage: 5MG 3DAYS/WEEK AND 7.5MG 4DAYS/WEEK FROM 5/1991;5MG 2DAYS/WEEK AND 7.5MG 5DAYS/WEEK FROM 2/13/09
     Dates: start: 19910501
  2. LANOXIN [Concomitant]
  3. METOPROLOL TARTRATE [Concomitant]
  4. VITAMINS [Concomitant]
  5. TYLENOL PM [Concomitant]
  6. ASPIRIN [Concomitant]
  7. LEVOTHYROXINE SODIUM [Concomitant]
  8. SIMVASTATIN [Concomitant]

REACTIONS (1)
  - INTERNATIONAL NORMALISED RATIO FLUCTUATION [None]
